FAERS Safety Report 12583577 (Version 1)
Quarter: 2016Q3

REPORT INFORMATION
  Report Type: Spontaneous
  Country: US (occurrence: US)
  Receive Date: 20160722
  Receipt Date: 20160722
  Transmission Date: 20161109
  Serious: No
  Sender: FDA-Public Use
  Company Number: US-GALDERMA-US15006360

PATIENT
  Sex: Female

DRUGS (5)
  1. DIFFERIN [Suspect]
     Active Substance: ADAPALENE
     Indication: ROSACEA
     Route: 061
     Dates: end: 2010
  2. CLINDAMYCIN IN A BENZOYL BASE [Concomitant]
     Indication: ROSACEA
     Route: 061
  3. PREMARIN (CONJUGATED ESTROGENS TABLETS, USP) [Concomitant]
     Route: 048
  4. XYZAL (LEVOCETIRIZINE) [Concomitant]
     Route: 048
  5. MAKE UP UNSPECIFIED [Concomitant]
     Route: 061

REACTIONS (1)
  - Drug ineffective for unapproved indication [Recovered/Resolved]
